FAERS Safety Report 6247134-7 (Version None)
Quarter: 2009Q2

REPORT INFORMATION
  Report Type: 
  Country: None (occurrence: None)
  Receive Date: 20090626
  Receipt Date: 20090624
  Transmission Date: 20091009
  Serious: Yes (Other)
  Sender: FDA-Public Use
  Company Number: LU-BAYER-200923861GPV

PATIENT
  Age: 78 Year
  Sex: Male

DRUGS (2)
  1. SORAFENIB [Suspect]
  2. SUNITINIB [Suspect]
     Indication: METASTATIC RENAL CELL CARCINOMA

REACTIONS (1)
  - HAEMOLYSIS [None]
